FAERS Safety Report 10798067 (Version 1)
Quarter: 2015Q1

REPORT INFORMATION
  Report Type: Spontaneous
  Country: US (occurrence: US)
  Receive Date: 20150216
  Receipt Date: 20150216
  Transmission Date: 20150721
  Serious: No
  Sender: FDA-Public Use
  Company Number: US-PFIZER INC-2015055867

PATIENT
  Sex: Female

DRUGS (3)
  1. CODEINE [Suspect]
     Active Substance: CODEINE
     Dosage: UNK
  2. ZITHROMAX [Suspect]
     Active Substance: AZITHROMYCIN DIHYDRATE
     Dosage: UNK
  3. ABILIFY [Suspect]
     Active Substance: ARIPIPRAZOLE
     Dosage: UNK

REACTIONS (1)
  - Drug hypersensitivity [Unknown]
